FAERS Safety Report 10926113 (Version 3)
Quarter: 2015Q2

REPORT INFORMATION
  Report Type: Spontaneous
  Country: US (occurrence: US)
  Receive Date: 20150318
  Receipt Date: 20150413
  Transmission Date: 20150821
  Serious: Yes (Hospitalization, Other)
  Sender: FDA-Public Use
  Company Number: US-SA-2015SA033076

PATIENT
  Age: 63 Year
  Sex: Female

DRUGS (2)
  1. LANTUS SOLOSTAR [Suspect]
     Active Substance: INSULIN GLARGINE
     Indication: TYPE 2 DIABETES MELLITUS
     Dosage: DOSE:26 UNIT(S)
     Route: 065
     Dates: start: 20150108
  2. SOLOSTAR [Concomitant]
     Active Substance: DEVICE

REACTIONS (4)
  - Blood pressure increased [Unknown]
  - Diabetic complication [Unknown]
  - Gout [Unknown]
  - Foot operation [Unknown]

NARRATIVE: CASE EVENT DATE: 201503
